FAERS Safety Report 4478359-9 (Version None)
Quarter: 2004Q4

REPORT INFORMATION
  Report Type: 
  Country: None (occurrence: None)
  Receive Date: 20041019
  Receipt Date: 20041006
  Transmission Date: 20050328
  Serious: Yes (Hospitalization)
  Sender: FDA-Public Use
  Company Number: GB-JNJFOC-20041002048

PATIENT
  Sex: Female

DRUGS (3)
  1. REMICADE [Suspect]
     Indication: RHEUMATOID ARTHRITIS
     Dosage: BREAK BETWEEN MARCH AND SEPTEMBER 2004 DUE TO SEVERE LEG ULCERS.
     Route: 042
  2. METHOTREXATE [Concomitant]
  3. PREDNISOLONE [Concomitant]

REACTIONS (2)
  - INFECTED SEBACEOUS CYST [None]
  - SKIN ULCER [None]
